FAERS Safety Report 15290168 (Version 1)
Quarter: 2018Q3

REPORT INFORMATION
  Report Type: Spontaneous
  Country: US (occurrence: US)
  Receive Date: 20180817
  Receipt Date: 20180817
  Transmission Date: 20181010
  Serious: No
  Sender: FDA-Public Use
  Company Number: US-HERON THERAPEUTICS, INC-HRTX-2018-000465

PATIENT
  Age: 79 Year
  Sex: Female

DRUGS (4)
  1. SUSTOL [Suspect]
     Active Substance: GRANISETRON
     Indication: PROPHYLAXIS OF NAUSEA AND VOMITING
     Dosage: 10 MG/0.4 ML SINGLE
     Dates: start: 20180605, end: 20180605
  2. SUSTOL [Suspect]
     Active Substance: GRANISETRON
     Dosage: 10 MG/0.4 ML SINGLE
     Dates: start: 20180619, end: 20180619
  3. SUSTOL [Suspect]
     Active Substance: GRANISETRON
     Dosage: 10 MG/0.4 ML SINGLE
     Route: 030
     Dates: start: 20180703, end: 20180703
  4. SUSTOL [Suspect]
     Active Substance: GRANISETRON
     Dosage: 10 MG/0.4 ML SINGLE
     Dates: start: 20180612, end: 20180612

REACTIONS (3)
  - Product quality issue [Unknown]
  - Incorrect route of drug administration [Unknown]
  - Procedural complication [Unknown]

NARRATIVE: CASE EVENT DATE: 20180703
